FAERS Safety Report 17353952 (Version 2)
Quarter: 2020Q1

REPORT INFORMATION
  Report Type: Spontaneous
  Country: US (occurrence: US)
  Receive Date: 20200131
  Receipt Date: 20200317
  Transmission Date: 20200409
  Serious: No
  Sender: FDA-Public Use
  Company Number: US-GLAXOSMITHKLINE-US2020011332

PATIENT
  Age: 73 Year
  Sex: Male
  Weight: 110.66 kg

DRUGS (1)
  1. TRELEGY ELLIPTA [Suspect]
     Active Substance: FLUTICASONE FUROATE\UMECLIDINIUM BROMIDE\VILANTEROL TRIFENATATE
     Indication: CHRONIC OBSTRUCTIVE PULMONARY DISEASE
     Dosage: UNK
     Route: 065
     Dates: start: 20200102, end: 20200117

REACTIONS (3)
  - Paraesthesia oral [Unknown]
  - Swollen tongue [Unknown]
  - Tongue erythema [Unknown]

NARRATIVE: CASE EVENT DATE: 20200106
